FAERS Safety Report 20841904 (Version 1)
Quarter: 2022Q2

REPORT INFORMATION
  Report Type: Spontaneous
  Country: DE (occurrence: DE)
  Receive Date: 20220518
  Receipt Date: 20220518
  Transmission Date: 20220721
  Serious: Yes (Other)
  Sender: FDA-Public Use
  Company Number: DE-BoehringerIngelheim-2022-BI-170542

PATIENT
  Age: 66 Year
  Sex: Female

DRUGS (2)
  1. AFATINIB [Suspect]
     Active Substance: AFATINIB
     Indication: Adenocarcinoma
  2. AFATINIB [Suspect]
     Active Substance: AFATINIB
     Indication: EGFR gene mutation

REACTIONS (2)
  - Malignant neoplasm progression [Unknown]
  - Pulmonary mass [Unknown]

NARRATIVE: CASE EVENT DATE: 20180701
